FAERS Safety Report 24180394 (Version 1)
Quarter: 2024Q3

REPORT INFORMATION
  Report Type: Spontaneous
  Country: US (occurrence: US)
  Receive Date: 20240806
  Receipt Date: 20240806
  Transmission Date: 20241017
  Serious: No
  Sender: ABBVIE
  Company Number: US-ABBVIE-5866811

PATIENT
  Sex: Female

DRUGS (2)
  1. LATISSE [Suspect]
     Active Substance: BIMATOPROST
     Indication: Growth of eyelashes
     Route: 047
  2. LATISSE [Suspect]
     Active Substance: BIMATOPROST
     Indication: Madarosis

REACTIONS (2)
  - Off label use [Unknown]
  - Expired product administered [Unknown]
